FAERS Safety Report 19261866 (Version 2)
Quarter: 2021Q2

REPORT INFORMATION
  Report Type: Report from Study
  Country: AR (occurrence: AR)
  Receive Date: 20210515
  Receipt Date: 20210521
  Transmission Date: 20210717
  Serious: Yes (Death, Hospitalization)
  Sender: FDA-Public Use
  Company Number: NVSC2021AR107365

PATIENT
  Age: 61 Year
  Sex: Female

DRUGS (5)
  1. LOTRIAL [Concomitant]
     Active Substance: ENALAPRIL MALEATE
     Indication: HYPERTENSION
     Route: 065
  2. AFINITOR [Suspect]
     Active Substance: EVEROLIMUS
     Indication: NEUROENDOCRINE TUMOUR
     Dosage: 10 MG, QD
     Route: 048
     Dates: start: 20210121, end: 202102
  3. SANDOSTATIN LAR DEPOT [Suspect]
     Active Substance: OCTREOTIDE ACETATE
     Dosage: UNK
     Route: 065
     Dates: start: 20201222
  4. SANDOSTATIN LAR DEPOT [Suspect]
     Active Substance: OCTREOTIDE ACETATE
     Indication: NEUROENDOCRINE TUMOUR
     Dosage: 30 MG, QMO (EVERY 28 DAYS) (STOP DATE: 3 DAYS BEFORE HER DEATH)
     Route: 030
     Dates: start: 20200222
  5. SANDOSTATIN LAR DEPOT [Suspect]
     Active Substance: OCTREOTIDE ACETATE

REACTIONS (11)
  - Pyrexia [Unknown]
  - Malignant neoplasm progression [Fatal]
  - Neuroendocrine tumour [Fatal]
  - Heart rate increased [Not Recovered/Not Resolved]
  - Cardiac arrest [Fatal]
  - Epistaxis [Unknown]
  - Pulmonary oedema [Unknown]
  - Oxygen saturation decreased [Unknown]
  - Agitation [Unknown]
  - Platelet count decreased [Not Recovered/Not Resolved]
  - Hepatic neoplasm [Fatal]

NARRATIVE: CASE EVENT DATE: 202102
